FAERS Safety Report 24734619 (Version 2)
Quarter: 2025Q2

REPORT INFORMATION
  Report Type: Spontaneous
  Country: CA (occurrence: CA)
  Receive Date: 20241214
  Receipt Date: 20250405
  Transmission Date: 20250717
  Serious: Yes (Disabling, Other)
  Sender: CELLTRION
  Company Number: CA-PFIZER INC-202101212069

PATIENT

DRUGS (47)
  1. INFLECTRA [Suspect]
     Active Substance: INFLIXIMAB-DYYB
     Indication: Crohn^s disease
     Route: 042
     Dates: start: 20180627
  2. INFLECTRA [Suspect]
     Active Substance: INFLIXIMAB-DYYB
     Route: 042
     Dates: start: 20210715
  3. INFLECTRA [Suspect]
     Active Substance: INFLIXIMAB-DYYB
     Route: 042
     Dates: start: 20210914
  4. INFLECTRA [Suspect]
     Active Substance: INFLIXIMAB-DYYB
     Route: 042
     Dates: start: 20220107
  5. INFLECTRA [Suspect]
     Active Substance: INFLIXIMAB-DYYB
     Route: 042
     Dates: start: 20220302
  6. INFLECTRA [Suspect]
     Active Substance: INFLIXIMAB-DYYB
     Route: 042
     Dates: start: 20220513
  7. INFLECTRA [Suspect]
     Active Substance: INFLIXIMAB-DYYB
     Route: 042
     Dates: start: 20220708
  8. INFLECTRA [Suspect]
     Active Substance: INFLIXIMAB-DYYB
     Route: 042
     Dates: start: 20220902
  9. INFLECTRA [Suspect]
     Active Substance: INFLIXIMAB-DYYB
     Route: 042
     Dates: start: 20220902
  10. INFLECTRA [Suspect]
     Active Substance: INFLIXIMAB-DYYB
     Route: 042
     Dates: start: 20221028
  11. INFLECTRA [Suspect]
     Active Substance: INFLIXIMAB-DYYB
     Route: 042
     Dates: start: 20230105
  12. INFLECTRA [Suspect]
     Active Substance: INFLIXIMAB-DYYB
     Route: 042
     Dates: start: 20230302
  13. INFLECTRA [Suspect]
     Active Substance: INFLIXIMAB-DYYB
     Route: 042
     Dates: start: 20230525
  14. INFLECTRA [Suspect]
     Active Substance: INFLIXIMAB-DYYB
     Route: 042
     Dates: start: 20240815
  15. INFLECTRA [Suspect]
     Active Substance: INFLIXIMAB-DYYB
     Route: 042
     Dates: start: 20241010
  16. INFLECTRA [Suspect]
     Active Substance: INFLIXIMAB-DYYB
     Route: 042
     Dates: start: 20241205
  17. INFLECTRA [Suspect]
     Active Substance: INFLIXIMAB-DYYB
     Route: 042
     Dates: start: 20250130
  18. INFLECTRA [Suspect]
     Active Substance: INFLIXIMAB-DYYB
     Route: 042
     Dates: start: 20250327
  19. MESALAMINE [Concomitant]
     Active Substance: MESALAMINE
  20. AMLODIPINE [Concomitant]
     Active Substance: AMLODIPINE BESYLATE
  21. ASCORBIC ACID [Concomitant]
     Active Substance: ASCORBIC ACID
  22. BENZOYL PEROXIDE [Concomitant]
     Active Substance: BENZOYL PEROXIDE
  23. CLINDOXYL [Concomitant]
     Active Substance: BENZOYL PEROXIDE\CLINDAMYCIN PHOSPHATE
  24. CYANOCOBALAMIN [Concomitant]
     Active Substance: CYANOCOBALAMIN
  25. .ALPHA.-TOCOPHEROL ACETATE, DL- [Concomitant]
     Active Substance: .ALPHA.-TOCOPHEROL ACETATE, DL-
  26. CHOLECALCIFEROL [Concomitant]
     Active Substance: CHOLECALCIFEROL
     Dosage: 1 DF, WEEKLY(10 000 UNITS 1 TABLET ONCE A WEEK ON WEDNESDAYS)
  27. FENTANYL [Concomitant]
     Active Substance: FENTANYL
     Dates: start: 20151006
  28. FOLIC ACID [Concomitant]
     Active Substance: FOLIC ACID
  29. HYDROCORTISONE ACETATE [Concomitant]
     Active Substance: HYDROCORTISONE ACETATE
  30. HYDROCORTISONE [Concomitant]
     Active Substance: HYDROCORTISONE
     Indication: Premedication
     Dates: start: 20241010, end: 20241010
  31. IRON [Concomitant]
     Active Substance: IRON
  32. JAMP CALCIUM [Concomitant]
  33. FERROUS SULFATE [Concomitant]
     Active Substance: FERROUS SULFATE
  34. MINT QUETIAPINE [Concomitant]
  35. NICOTINAMIDE [Concomitant]
     Active Substance: NIACINAMIDE
  36. NOVO-CHLORPROMAZINE [Concomitant]
  37. PENTASA [Concomitant]
     Active Substance: MESALAMINE
  38. PANTOPRAZOLE [Concomitant]
     Active Substance: PANTOPRAZOLE
  39. CLONAZEPAM [Concomitant]
     Active Substance: CLONAZEPAM
  40. VALPROIC ACID [Concomitant]
     Active Substance: VALPROIC ACID
  41. PSYLLIUM HUSK [Concomitant]
     Active Substance: PSYLLIUM HUSK
  42. PYRIDOXINE HYDROCHLORIDE [Concomitant]
     Active Substance: PYRIDOXINE HYDROCHLORIDE
  43. RABEPRAZOLE [Concomitant]
     Active Substance: RABEPRAZOLE
  44. VITAMIN A PALMITATE [Concomitant]
     Active Substance: VITAMIN A PALMITATE
  45. RIBOFLAVIN [Concomitant]
     Active Substance: RIBOFLAVIN
  46. CHOLECALCIFEROL [Concomitant]
     Active Substance: CHOLECALCIFEROL
  47. WEBBER MULTIVITAMINS [Concomitant]

REACTIONS (5)
  - Hypertension [Unknown]
  - Mobility decreased [Unknown]
  - Condition aggravated [Recovered/Resolved]
  - Weight decreased [Unknown]
  - Inappropriate schedule of product administration [Unknown]

NARRATIVE: CASE EVENT DATE: 20220107
